FAERS Safety Report 8403367-2 (Version None)
Quarter: 2012Q2

REPORT INFORMATION
  Report Type: 
  Country: None (occurrence: None)
  Receive Date: 20120601
  Receipt Date: 20120530
  Transmission Date: 20120825
  Serious: No
  Sender: FDA-Public Use
  Company Number: US-PFIZER INC-2012130586

PATIENT

DRUGS (1)
  1. SOLU-MEDROL [Suspect]
     Indication: RESPIRATORY DISORDER
     Dosage: UNK
     Route: 030
     Dates: start: 20120526, end: 20120526

REACTIONS (1)
  - PAIN [None]
